FAERS Safety Report 4650891-4 (Version None)
Quarter: 2005Q2

REPORT INFORMATION
  Report Type: 
  Country: None (occurrence: None)
  Receive Date: 20050429
  Receipt Date: 20050429
  Transmission Date: 20051028
  Serious: Yes (Other)
  Sender: FDA-Public Use
  Company Number: None

PATIENT
  Age: 44 Year
  Sex: Male
  Weight: 64.4108 kg

DRUGS (7)
  1. REYATAZ [Suspect]
     Indication: HIV INFECTION
     Dosage: 2 CAPS QD
     Dates: start: 20050315
  2. ABACAVIR/LAMIVUDINE  600MG/300MG [Suspect]
     Dosage: 1 TAB QD
     Dates: start: 20050315
  3. BACTRIM [Concomitant]
  4. DIFLUCAN [Concomitant]
  5. M.V.I. [Concomitant]
  6. TYLENOL [Concomitant]
  7. IBUPROFEN [Concomitant]

REACTIONS (5)
  - FATIGUE [None]
  - MALAISE [None]
  - NAUSEA [None]
  - RASH [None]
  - TACHYCARDIA [None]
